FAERS Safety Report 9856480 (Version 1)
Quarter: 2014Q1

REPORT INFORMATION
  Report Type: Spontaneous
  Country: DE (occurrence: DE)
  Receive Date: 20140130
  Receipt Date: 20140130
  Transmission Date: 20141002
  Serious: Yes (Other)
  Sender: FDA-Public Use
  Company Number: DE-B.I. PHARMACEUTICALS,INC./RIDGEFIELD-2014-BI-03414DE

PATIENT
  Sex: Female
  Weight: 68 kg

DRUGS (1)
  1. DULCOLAX [Suspect]
     Indication: CONSTIPATION

REACTIONS (4)
  - Circulatory collapse [Recovered/Resolved]
  - Abdominal pain upper [Recovered/Resolved]
  - Gastrointestinal disorder [Recovered/Resolved]
  - Hyperhidrosis [Recovered/Resolved]
